FAERS Safety Report 18331847 (Version 1)
Quarter: 2020Q3

REPORT INFORMATION
  Report Type: Report from Study
  Country: CA (occurrence: CA)
  Receive Date: 20200930
  Receipt Date: 20200930
  Transmission Date: 20201103
  Serious: Yes (Death, Other)
  Sender: FDA-Public Use
  Company Number: CA-JNJFOC-20200318910

PATIENT
  Age: 60 Year
  Sex: Male

DRUGS (1)
  1. SIMPONI [Suspect]
     Active Substance: GOLIMUMAB
     Indication: RHEUMATOID ARTHRITIS
     Route: 042

REACTIONS (10)
  - Chest pain [Unknown]
  - Dyspnoea [Unknown]
  - Death [Fatal]
  - Abdominal cavity drainage [Unknown]
  - Oedema peripheral [Unknown]
  - Weight increased [Unknown]
  - Yellow skin [Unknown]
  - Pancreatic disorder [Unknown]
  - Muscle spasms [Unknown]
  - Localised infection [Unknown]

NARRATIVE: CASE EVENT DATE: 20200309
